FAERS Safety Report 7817188-2 (Version None)
Quarter: 2011Q4

REPORT INFORMATION
  Report Type: 
  Country: None (occurrence: None)
  Receive Date: 20111017
  Receipt Date: 20111017
  Transmission Date: 20120403
  Serious: Yes (Other)
  Sender: FDA-Public Use
  Company Number: None

PATIENT
  Age: 41 Year
  Sex: Female
  Weight: 60.327 kg

DRUGS (1)
  1. NICODERM CQ [Suspect]
     Indication: SMOKING CESSATION THERAPY
     Dosage: 1
     Dates: start: 20111015, end: 20111016

REACTIONS (7)
  - CRYING [None]
  - APPLICATION SITE RASH [None]
  - APPLICATION SITE IRRITATION [None]
  - NIGHTMARE [None]
  - PAROSMIA [None]
  - APPLICATION SITE PRURITUS [None]
  - DYSGEUSIA [None]
